FAERS Safety Report 9642786 (Version 1)
Quarter: 2013Q4

REPORT INFORMATION
  Report Type: Spontaneous
  Country: NZ (occurrence: NZ)
  Receive Date: 20131024
  Receipt Date: 20131024
  Transmission Date: 20140711
  Serious: Yes (Other)
  Sender: FDA-Public Use
  Company Number: NZ-PERRIGO-13NZ010794

PATIENT
  Age: 52 Year
  Sex: Female
  Weight: 61 kg

DRUGS (8)
  1. ACETAMINOPHEN 650MG ER 544 [Suspect]
     Indication: NECK PAIN
     Dosage: 4 GM DAILY
     Route: 048
     Dates: start: 201111, end: 201112
  2. ACETAMINOPHEN 650MG ER 544 [Suspect]
     Dosage: 4 GM DAILY
     Route: 048
     Dates: start: 201202
  3. OMEPRAZOLE [Concomitant]
     Indication: PRODUCT USED FOR UNKNOWN INDICATION
     Dosage: UNKNOWN, UNKNOWN
     Route: 048
  4. CITALOPRAM [Concomitant]
     Indication: DEPRESSION
     Dosage: 20 MG, QD
     Route: 048
  5. SYMBICORT [Concomitant]
     Indication: ASTHMA
     Dosage: UNKNOWN, UNKNOWN
     Route: 055
  6. ZOPICLONE [Concomitant]
     Indication: PRODUCT USED FOR UNKNOWN INDICATION
     Dosage: UNKNOWN, UNKNOWN
     Route: 065
  7. VITAMINS NOS [Concomitant]
     Indication: SUPPLEMENTATION THERAPY
     Dosage: UNKNOWN, UNKNOWN
     Route: 048
  8. DIAZEPAM [Concomitant]
     Indication: ALCOHOL WITHDRAWAL SYNDROME
     Dosage: UNKNOWN, UNKNOWN
     Route: 065

REACTIONS (2)
  - Liver injury [Recovering/Resolving]
  - Toxicity to various agents [Recovering/Resolving]
